FAERS Safety Report 4479976-2 (Version None)
Quarter: 2004Q4

REPORT INFORMATION
  Report Type: 
  Country: None (occurrence: None)
  Receive Date: 20041018
  Receipt Date: 20041004
  Transmission Date: 20050328
  Serious: Yes (Hospitalization)
  Sender: FDA-Public Use
  Company Number: S04-FRA-06619-01

PATIENT
  Age: 45 Year
  Sex: Male

DRUGS (3)
  1. AOTAL (ACAMPROSATE) [Suspect]
     Dosage: 333 MG QD PO
     Route: 048
     Dates: start: 20040501, end: 20040903
  2. TAREG (VALSARTAN) [Suspect]
     Dosage: 40 MG QD PO
     Route: 048
     Dates: start: 20040501, end: 20040906
  3. STRESAM (ETIFOXINE) [Concomitant]

REACTIONS (5)
  - BLOOD BILIRUBIN INCREASED [None]
  - BLOOD FOLATE INCREASED [None]
  - HAEMOLYTIC ANAEMIA [None]
  - HAPTOGLOBIN DECREASED [None]
  - PLATELET COUNT INCREASED [None]
